FAERS Safety Report 7906665-1 (Version None)
Quarter: 2011Q4

REPORT INFORMATION
  Report Type: 
  Country: None (occurrence: None)
  Receive Date: 20111109
  Receipt Date: 20111109
  Transmission Date: 20120403
  Serious: Yes (Other)
  Sender: FDA-Public Use
  Company Number: None

PATIENT
  Sex: Female
  Weight: 63.05 kg

DRUGS (4)
  1. SIMVASTATIN [Suspect]
     Indication: BLOOD PRESSURE
     Dosage: 1 PER DAY
     Dates: start: 20110401, end: 20110601
  2. SIMVASTATIN [Suspect]
     Indication: BLOOD CHOLESTEROL ABNORMAL
     Dosage: 1 PER DAY
     Dates: start: 20110401, end: 20110601
  3. TRIAMTERENE AND HYDROCHLOROTHIAZIDE [Suspect]
     Dosage: 1 PER DAY
     Dates: start: 20110401, end: 20110601
  4. AMLODIPINE BESYLATE [Concomitant]

REACTIONS (14)
  - TINNITUS [None]
  - DIZZINESS [None]
  - DYSPHAGIA [None]
  - THROAT IRRITATION [None]
  - FATIGUE [None]
  - OROPHARYNGEAL PAIN [None]
  - NECK PAIN [None]
  - ERUCTATION [None]
  - PRODUCT ODOUR ABNORMAL [None]
  - HERPES ZOSTER [None]
  - VOMITING [None]
  - ORAL DISCOMFORT [None]
  - DYSPEPSIA [None]
  - DIARRHOEA [None]
